FAERS Safety Report 13440180 (Version 2)
Quarter: 2017Q2

REPORT INFORMATION
  Report Type: Report from Study
  Country: None (occurrence: US)
  Receive Date: 20170413
  Receipt Date: 20170619
  Transmission Date: 20170830
  Serious: Yes (Other)
  Sender: FDA-Public Use
  Company Number: US-ABBVIE-17K-163-1844984-00

PATIENT
  Age: 75 Year
  Sex: Female

DRUGS (4)
  1. TRAMADOL. [Suspect]
     Active Substance: TRAMADOL
     Dosage: 1 TABLET IN THE MORNING
     Route: 065
  2. TRAMADOL. [Suspect]
     Active Substance: TRAMADOL
     Indication: PAIN
     Dosage: 2 TABLETS EVERY MORNING AND EVENING
     Route: 065
  3. HUMIRA [Suspect]
     Active Substance: ADALIMUMAB
     Route: 058
  4. HUMIRA [Suspect]
     Active Substance: ADALIMUMAB
     Indication: RHEUMATOID ARTHRITIS
     Route: 058

REACTIONS (27)
  - Muscle rupture [Unknown]
  - Fall [Unknown]
  - Arthralgia [Not Recovered/Not Resolved]
  - Toothache [Not Recovered/Not Resolved]
  - Muscle rupture [Not Recovered/Not Resolved]
  - Vomiting [Unknown]
  - Spondylitis [Not Recovered/Not Resolved]
  - Somnolence [Unknown]
  - Fatigue [Recovering/Resolving]
  - Visual acuity reduced [Not Recovered/Not Resolved]
  - Precancerous skin lesion [Not Recovered/Not Resolved]
  - Drug intolerance [Unknown]
  - Contrast media allergy [Unknown]
  - Dental caries [Not Recovered/Not Resolved]
  - Fall [Unknown]
  - Squamous cell carcinoma of skin [Not Recovered/Not Resolved]
  - Vitamin D decreased [Unknown]
  - Muscular weakness [Not Recovered/Not Resolved]
  - Retching [Unknown]
  - Subclavian artery occlusion [Unknown]
  - Dizziness [Not Recovered/Not Resolved]
  - Ligament rupture [Unknown]
  - Nodule [Not Recovered/Not Resolved]
  - Dyspnoea [Not Recovered/Not Resolved]
  - Musculoskeletal pain [Not Recovered/Not Resolved]
  - Hypotension [Not Recovered/Not Resolved]
  - Nausea [Unknown]

NARRATIVE: CASE EVENT DATE: 20161031
